FAERS Safety Report 9071664 (Version 3)
Quarter: 2013Q2

REPORT INFORMATION
  Report Type: Spontaneous
  Country: IL (occurrence: IL)
  Receive Date: 20130129
  Receipt Date: 20130408
  Transmission Date: 20140414
  Serious: Yes (Death)
  Sender: FDA-Public Use
  Company Number: IL-ROCHE-1183651

PATIENT
  Sex: Female
  Weight: 80 kg

DRUGS (1)
  1. AVASTIN [Suspect]
     Indication: COLON CANCER METASTATIC
     Dosage: ON 10/APR/2012, THE PATIENT RECEIVED LAST TREATMENT
     Route: 065

REACTIONS (1)
  - Death [Fatal]
